FAERS Safety Report 9202394 (Version 1)
Quarter: 2013Q2

REPORT INFORMATION
  Report Type: Spontaneous
  Country: US (occurrence: US)
  Receive Date: 20130401
  Receipt Date: 20130401
  Transmission Date: 20140414
  Serious: No
  Sender: FDA-Public Use
  Company Number: US-PFIZER INC-2013103153

PATIENT
  Age: 53 Year
  Sex: Female
  Weight: 71.66 kg

DRUGS (2)
  1. CELEBREX [Suspect]
     Indication: ARTHRITIS
     Dosage: 100 MG, 1X/DAY
     Route: 048
  2. CELEBREX [Suspect]
     Dosage: 200MG TO 400MG, 1X/DAY
     Route: 048
     Dates: start: 201303

REACTIONS (1)
  - Gastrointestinal disorder [Unknown]
